FAERS Safety Report 4688667-4 (Version None)
Quarter: 2005Q2

REPORT INFORMATION
  Report Type: 
  Country: None (occurrence: None)
  Receive Date: 20050610
  Receipt Date: 20050610
  Transmission Date: 20051028
  Serious: Yes (Other)
  Sender: FDA-Public Use
  Company Number: None

PATIENT
  Sex: Male
  Weight: 101.2 kg

DRUGS (4)
  1. FLUOROURACIL [Suspect]
     Indication: PANCREATIC CARCINOMA
     Dosage: VIA AMBULATORY PUMP INTO A CENTRAL VENOUS CATHETER AT 175 MG/M2/DAY FOR 38 CONSECUTIVE DAYS (DAY 1-3
     Route: 042
     Dates: start: 20050509
  2. CISPLATIN [Suspect]
     Indication: PANCREATIC CARCINOMA
     Dosage: (30 MG/2) GIVEN ON THE FIRST DAY ONLY OF EACH WEEK OF THIS CYCLE (DAYS 1, 8, 15, 22, 29, 36).
     Dates: start: 20050509
  3. INTERFERON [Suspect]
     Indication: PANCREATIC CARCINOMA
     Dosage: 3 MILLION IU GIVEN SUBCUTANEOUSLY ON DAYS 1, 3, 5, OF EACH WEEK FOR 5.5 WEEKS
     Dates: start: 20050509
  4. RADIATION [Suspect]
     Indication: PANCREATIC CARCINOMA
     Dosage: 5040 CGY TOTAL GIVEN IN 28 FRACTIONS AT 180 CGY FRACTIONS GIVEN DAILY MONDAY-FRIDAY FOR 5/5 WEEKS.
     Dates: start: 20050509

REACTIONS (5)
  - DEHYDRATION [None]
  - DIARRHOEA [None]
  - HYPOKALAEMIA [None]
  - HYPOMAGNESAEMIA [None]
  - NEUTROPHIL COUNT DECREASED [None]
